FAERS Safety Report 24813118 (Version 1)
Quarter: 2025Q1

REPORT INFORMATION
  Report Type: Spontaneous
  Country: GB (occurrence: GB)
  Receive Date: 20250107
  Receipt Date: 20250107
  Transmission Date: 20250409
  Serious: Yes (Other)
  Sender: NOVO NORDISK
  Company Number: GB-MHRA-EMIS-1957-02400da7-1b53-484f-b5a4-eea231d5dcd1

PATIENT
  Age: 67 Year
  Sex: Female
  Weight: 54 kg

DRUGS (3)
  1. COMIRNATY [Concomitant]
     Indication: COVID-19 immunisation
     Dates: start: 20241004
  2. HYDROMOL [SODIUM PIDOLATE] [Concomitant]
     Dates: start: 20241030
  3. RYBELSUS [Suspect]
     Active Substance: SEMAGLUTIDE
     Indication: Type 2 diabetes mellitus
     Dates: start: 20241105

REACTIONS (1)
  - Photosensitivity reaction [Recovered/Resolved]
